FAERS Safety Report 4343647-3 (Version None)
Quarter: 2004Q2

REPORT INFORMATION
  Report Type: 
  Country: None (occurrence: None)
  Receive Date: 20040419
  Receipt Date: 20040408
  Transmission Date: 20050107
  Serious: Yes (Death)
  Sender: FDA-Public Use
  Company Number: 04H-055-0256741-00

PATIENT
  Age: 83 Year
  Sex: Male

DRUGS (1)
  1. HEPARIN SODIUM [Suspect]

REACTIONS (1)
  - HAEMORRHAGE INTRACRANIAL [None]
